APPROVED DRUG PRODUCT: GLYCOPYRROLATE
Active Ingredient: GLYCOPYRROLATE
Strength: 1MG
Dosage Form/Route: TABLET;ORAL
Application: A040847 | Product #001 | TE Code: AA
Applicant: CHARTWELL RX SCIENCES LLC
Approved: Mar 21, 2008 | RLD: No | RS: No | Type: RX